FAERS Safety Report 8407052-2 (Version None)
Quarter: 2012Q2

REPORT INFORMATION
  Report Type: 
  Country: None (occurrence: None)
  Receive Date: 20120604
  Receipt Date: 20120530
  Transmission Date: 20120825
  Serious: Yes (Hospitalization)
  Sender: FDA-Public Use
  Company Number: PHHY2012NZ046434

PATIENT
  Sex: Female

DRUGS (1)
  1. ZOLEDRONOC ACID [Suspect]
     Dosage: UNK UKN, UNK
     Route: 042
     Dates: start: 20120521

REACTIONS (4)
  - MUSCULOSKELETAL STIFFNESS [None]
  - FALL [None]
  - LOSS OF CONSCIOUSNESS [None]
  - HEADACHE [None]
